FAERS Safety Report 7213206-3 (Version None)
Quarter: 2010Q4

REPORT INFORMATION
  Report Type: 
  Country: None (occurrence: None)
  Receive Date: 20101227
  Receipt Date: 20101220
  Transmission Date: 20110411
  Serious: Yes (Death)
  Sender: FDA-Public Use
  Company Number: 08-208

PATIENT
  Age: 70 Year
  Sex: Female

DRUGS (6)
  1. FAZACLO ODT [Suspect]
     Dosage: 500 MG DAILY PO
     Route: 048
     Dates: start: 20060530, end: 20080724
  2. TOFRANIL [Concomitant]
  3. CELEXA [Concomitant]
  4. SEPTRA [Concomitant]
  5. ASPIRIN [Concomitant]
  6. MULTI-VITAMIN [Concomitant]

REACTIONS (2)
  - AORTIC VALVE STENOSIS [None]
  - SCHIZOPHRENIA [None]
